FAERS Safety Report 4700874-0 (Version None)
Quarter: 2005Q2

REPORT INFORMATION
  Report Type: 
  Country: None (occurrence: None)
  Receive Date: 20050624
  Receipt Date: 20050610
  Transmission Date: 20051028
  Serious: Yes (Hospitalization)
  Sender: FDA-Public Use
  Company Number: 2005BI011347

PATIENT
  Age: 33 Year
  Sex: Female
  Weight: 117.9352 kg

DRUGS (4)
  1. AVONEX [Suspect]
     Indication: MULTIPLE SCLEROSIS
     Dosage: 30 UG;QW;IM
     Route: 030
     Dates: start: 20030101, end: 20030101
  2. AVONEX [Suspect]
     Indication: MULTIPLE SCLEROSIS
     Dosage: 30 UG;QW;IM
     Route: 030
     Dates: start: 20030101
  3. METFORMIN [Concomitant]
  4. ORAL CONTRACEPTIVES [Concomitant]

REACTIONS (11)
  - BLADDER DISORDER [None]
  - BONE PAIN [None]
  - DEPRESSION [None]
  - DIFFICULTY IN WALKING [None]
  - FAECALOMA [None]
  - FATIGUE [None]
  - HEADACHE [None]
  - HYPOAESTHESIA [None]
  - NECK PAIN [None]
  - OPTIC NEURITIS [None]
  - VISION BLURRED [None]
